FAERS Safety Report 17845227 (Version 2)
Quarter: 2020Q4

REPORT INFORMATION
  Report Type: Spontaneous
  Country: VE (occurrence: VE)
  Receive Date: 20200601
  Receipt Date: 20201119
  Transmission Date: 20210113
  Serious: Yes (Other)
  Sender: FDA-Public Use
  Company Number: PHHY2019VE215944

PATIENT
  Sex: Male

DRUGS (2)
  1. GLIVEC [Suspect]
     Active Substance: IMATINIB MESYLATE
     Dosage: 600 MG (6 X 100 MG TABLET)
     Route: 065
  2. GLIVEC [Suspect]
     Active Substance: IMATINIB MESYLATE
     Indication: CHRONIC MYELOID LEUKAEMIA
     Dosage: 400 MG, UNK (4 X 100 MG TABLETS)
     Route: 065

REACTIONS (10)
  - Swelling face [Unknown]
  - Haemoglobin decreased [Recovered/Resolved]
  - Respiratory tract infection [Unknown]
  - Splenomegaly [Unknown]
  - Platelet count decreased [Recovered/Resolved]
  - Leukocytosis [Unknown]
  - Chronic myeloid leukaemia [Unknown]
  - Peripheral swelling [Unknown]
  - Malignant neoplasm progression [Unknown]
  - White blood cell count increased [Unknown]
